FAERS Safety Report 6686663-9 (Version None)
Quarter: 2010Q2

REPORT INFORMATION
  Report Type: 
  Country: None (occurrence: None)
  Receive Date: 20100419
  Receipt Date: 20100408
  Transmission Date: 20101027
  Serious: Yes (Other)
  Sender: FDA-Public Use
  Company Number: BE-JNJFOC-20100402452

PATIENT
  Age: 35 Year
  Sex: Male

DRUGS (2)
  1. REMICADE [Suspect]
     Indication: ANKYLOSING SPONDYLITIS
     Dosage: APPROXIMATELY 5 YEARS
     Route: 042
  2. REMICADE [Suspect]
     Route: 042

REACTIONS (1)
  - RETINAL VASCULAR THROMBOSIS [None]
